FAERS Safety Report 10046994 (Version 1)
Quarter: 2014Q1

REPORT INFORMATION
  Report Type: Spontaneous
  Country: NO (occurrence: None)
  Receive Date: 20140327
  Receipt Date: 20140327
  Transmission Date: 20141002
  Serious: Yes (Death)
  Sender: FDA-Public Use
  Company Number: 2014P1002439

PATIENT
  Age: 22 Year
  Sex: Female
  Weight: 53 kg

DRUGS (5)
  1. MECLIZINE [Suspect]
  2. CYCLIZINE [Suspect]
  3. PARACETAMOL [Suspect]
  4. VENLAFAXINE [Suspect]
  5. ETHANOL [Suspect]

REACTIONS (9)
  - Loss of consciousness [None]
  - Aspiration [None]
  - Drug abuse [None]
  - Completed suicide [None]
  - Overdose [None]
  - Medication residue present [None]
  - Pulmonary congestion [None]
  - Pulmonary oedema [None]
  - Hepatic necrosis [None]
